FAERS Safety Report 8524549-5 (Version None)
Quarter: 2012Q2

REPORT INFORMATION
  Report Type: 
  Country: None (occurrence: None)
  Receive Date: 20120406
  Receipt Date: 20120110
  Transmission Date: 20120825
  Serious: Yes (Other)
  Sender: FDA-Public Use
  Company Number: US-2012-10099

PATIENT
  Age: 41 Month
  Sex: Female

DRUGS (6)
  1. FLUDARABINE PHOSPHATE [Concomitant]
  2. ALEMTUZUMAB (ALEMTUZUMAB) [Concomitant]
  3. BUSULFEX [Suspect]
     Indication: STEM CELL TRANSPLANT
     Dosage: 0.8 MG/KG, Q6HR, INTRAVENOUS
     Route: 042
  4. CYCLOPHOSPHAMIDE [Concomitant]
  5. METHOTREXATE [Concomitant]
  6. CYCLOSPORINE [Concomitant]

REACTIONS (1)
  - ADENOVIRUS INFECTION [None]
